FAERS Safety Report 20137125 (Version 2)
Quarter: 2021Q4

REPORT INFORMATION
  Report Type: Report from Study
  Country: US (occurrence: US)
  Receive Date: 20211201
  Receipt Date: 20211221
  Transmission Date: 20220303
  Serious: Yes (Hospitalization, Other)
  Sender: FDA-Public Use
  Company Number: US-GILEAD-2021-0555074

PATIENT
  Age: 69 Year
  Sex: Female

DRUGS (42)
  1. INFLIXIMAB [Suspect]
     Active Substance: INFLIXIMAB
     Indication: COVID-19
     Dosage: UNK, ONCE
     Route: 042
     Dates: start: 20211004
  2. PLACEBO [Suspect]
     Active Substance: UNSPECIFIED INGREDIENT
     Indication: COVID-19
     Dosage: UNK, ONCE
     Route: 042
     Dates: start: 20211004
  3. REMDESIVIR [Suspect]
     Active Substance: REMDESIVIR
     Indication: COVID-19
     Dosage: UNK, QD
     Route: 042
     Dates: start: 20211004
  4. AZITHROMYCIN [Concomitant]
     Active Substance: AZITHROMYCIN
  5. CEFTRIAXONE [Concomitant]
     Active Substance: CEFTRIAXONE
  6. CODEINE\GUAIFENESIN [Concomitant]
     Active Substance: CODEINE\GUAIFENESIN
  7. CHOLECALCIFEROL [Concomitant]
     Active Substance: CHOLECALCIFEROL
  8. DEXAMETHASONE [Concomitant]
     Active Substance: DEXAMETHASONE
  9. ENOXAPARIN [Concomitant]
     Active Substance: ENOXAPARIN
  10. GUAIFENESIN [Concomitant]
     Active Substance: GUAIFENESIN
  11. HYDROXYZINE PAMOATE [Concomitant]
     Active Substance: HYDROXYZINE PAMOATE
  12. INSULIN LISPRO [Concomitant]
     Active Substance: INSULIN LISPRO
  13. ALBUTEROL\IPRATROPIUM [Concomitant]
     Active Substance: ALBUTEROL\IPRATROPIUM
  14. LORATADINE [Concomitant]
     Active Substance: LORATADINE
  15. LORAZEPAM [Concomitant]
     Active Substance: LORAZEPAM
  16. MINERALS\VITAMINS [Concomitant]
     Active Substance: MINERALS\VITAMINS
  17. ACETAMINOPHEN [Concomitant]
     Active Substance: ACETAMINOPHEN
  18. ALBUTEROL [Concomitant]
     Active Substance: ALBUTEROL
  19. TOCOPHEROL [Concomitant]
     Active Substance: TOCOPHEROL
  20. ASCORBIC ACID [Concomitant]
     Active Substance: ASCORBIC ACID
  21. BENZONATATE [Concomitant]
     Active Substance: BENZONATATE
  22. CALCIUM;MAGNESIUM;ZINC GLUCONATE [Concomitant]
  23. CEFDINIR [Concomitant]
     Active Substance: CEFDINIR
  24. CEFEPIME [Concomitant]
     Active Substance: CEFEPIME HYDROCHLORIDE
  25. CETIRIZINE [Concomitant]
     Active Substance: CETIRIZINE HYDROCHLORIDE
  26. DOXYCYCLINE [Concomitant]
     Active Substance: DOXYCYCLINE
  27. FOLIC ACID [Concomitant]
     Active Substance: FOLIC ACID
  28. FUROSEMIDE [Concomitant]
     Active Substance: FUROSEMIDE
  29. INSULIN GLARGINE [Concomitant]
     Active Substance: INSULIN GLARGINE
  30. IOPAMIDOL [Concomitant]
     Active Substance: IOPAMIDOL
  31. ALBUTEROL\IPRATROPIUM [Concomitant]
     Active Substance: ALBUTEROL\IPRATROPIUM
  32. METOPROLOL [Concomitant]
     Active Substance: METOPROLOL
  33. MOMETASONE FUROATE [Concomitant]
     Active Substance: MOMETASONE FUROATE
  34. NYSTATIN [Concomitant]
     Active Substance: NYSTATIN
  35. PANTOPRAZOLE [Concomitant]
     Active Substance: PANTOPRAZOLE
  36. SODIUM CHLORIDE [Concomitant]
     Active Substance: SODIUM CHLORIDE
  37. THIAMINE [Concomitant]
     Active Substance: THIAMINE
  38. TRAZODONE [Concomitant]
     Active Substance: TRAZODONE HYDROCHLORIDE
  39. VANCOMYCIN [Concomitant]
     Active Substance: VANCOMYCIN
  40. VITAMIN B COMPLEX [Concomitant]
     Active Substance: CYANOCOBALAMIN\DEXPANTHENOL\NIACINAMIDE\PYRIDOXINE HYDROCHLORIDE\RIBOFLAVIN 5^-PHOSPHATE SODIUM\THIA
  41. VORICONAZOLE [Concomitant]
     Active Substance: VORICONAZOLE
  42. ZINC SULFATE [Concomitant]
     Active Substance: ZINC SULFATE

REACTIONS (3)
  - Acute respiratory failure [Not Recovered/Not Resolved]
  - Dyspnoea [Unknown]
  - Pyrexia [Not Recovered/Not Resolved]

NARRATIVE: CASE EVENT DATE: 20211025
